FAERS Safety Report 9293199 (Version 3)
Quarter: 2013Q3

REPORT INFORMATION
  Report Type: Spontaneous
  Country: JP (occurrence: JP)
  Receive Date: 20130516
  Receipt Date: 20130726
  Transmission Date: 20140515
  Serious: Yes (Hospitalization, Other)
  Sender: FDA-Public Use
  Company Number: JP-PFIZER INC-2013149474

PATIENT
  Age: 69 Year
  Sex: Female

DRUGS (5)
  1. CELECOX [Suspect]
     Indication: HYPOAESTHESIA
     Dosage: UNK
     Route: 048
     Dates: start: 20130329, end: 2013
  2. CELECOX [Suspect]
     Indication: PAIN
  3. PRIMPERAN [Suspect]
     Dosage: UNK
     Route: 048
     Dates: end: 2013
  4. DEPAS [Concomitant]
     Route: 048
  5. FOSAMAC [Concomitant]
     Dosage: UNK

REACTIONS (5)
  - Compression fracture [Recovered/Resolved]
  - Fall [Recovered/Resolved]
  - Muscular weakness [Recovered/Resolved]
  - Hyperventilation [Recovering/Resolving]
  - Off label use [Unknown]
